FAERS Safety Report 6439258-6 (Version None)
Quarter: 2009Q4

REPORT INFORMATION
  Report Type: 
  Country: None (occurrence: None)
  Receive Date: 20091113
  Receipt Date: 20091102
  Transmission Date: 20100525
  Serious: Yes (Other)
  Sender: FDA-Public Use
  Company Number: PL-PFIZER INC-2009291795

PATIENT
  Sex: Female

DRUGS (1)
  1. MEDROL [Suspect]
     Dosage: 4MG AND 2MG ALTERNATE DAY

REACTIONS (2)
  - HAEMATOMA [None]
  - JOINT SWELLING [None]
